FAERS Safety Report 6518183-6 (Version None)
Quarter: 2009Q4

REPORT INFORMATION
  Report Type: 
  Country: None (occurrence: None)
  Receive Date: 20091218
  Receipt Date: 20091204
  Transmission Date: 20100525
  Serious: Yes (Other)
  Sender: FDA-Public Use
  Company Number: 1000010443

PATIENT
  Age: 49 Year
  Sex: Female

DRUGS (2)
  1. CITALOPRAM HYDROBROMIDE [Suspect]
     Dosage: ORAL; 30 MG (30 MG, 1 IN  1 D), ORAL; 40 MG (40 MG, 1 IN 1 D), ORAL
     Route: 048
  2. TAVOR [Concomitant]

REACTIONS (5)
  - DRUG DOSE OMISSION [None]
  - HOT FLUSH [None]
  - NEGATIVE THOUGHTS [None]
  - RESTLESSNESS [None]
  - TREATMENT NONCOMPLIANCE [None]
